FAERS Safety Report 8473970-2 (Version None)
Quarter: 2012Q2

REPORT INFORMATION
  Report Type: 
  Country: None (occurrence: None)
  Receive Date: 20120628
  Receipt Date: 20120322
  Transmission Date: 20120825
  Serious: Yes (Death)
  Sender: FDA-Public Use
  Company Number: US-MYLANLABS-2012S1004667

PATIENT
  Age: 65 Year
  Sex: Female

DRUGS (11)
  1. BACTRIM [Concomitant]
     Dosage: DOUBLE STRENGTH
     Dates: start: 20120130
  2. ELIMITE [Concomitant]
     Dates: start: 20120126
  3. OXYCODONE HCL AND ACETAMINOPHEN [Concomitant]
     Dosage: 7.5MG/325MG
     Dates: start: 20120126
  4. LOPERAMIDE [Concomitant]
     Dates: start: 20111212
  5. CLOZAPINE [Suspect]
     Indication: SCHIZOPHRENIA
     Dosage: 100MG QAM, 200MG HS
     Route: 048
     Dates: end: 20120201
  6. IBUPROFEN [Concomitant]
     Dates: start: 20120126
  7. ALLOPURINOL [Concomitant]
     Dates: start: 20120102
  8. ANTISTRESS [Concomitant]
     Dates: start: 20120112
  9. ASCORBIC ACID [Concomitant]
     Dates: start: 20120116
  10. ISOSORBIDE [Concomitant]
     Dates: start: 20120110
  11. LEVOTHYROXINE SODIUM [Concomitant]
     Dates: start: 20120108

REACTIONS (1)
  - DEATH [None]
